FAERS Safety Report 22162052 (Version 3)
Quarter: 2023Q2

REPORT INFORMATION
  Report Type: Report from Study
  Country: US (occurrence: US)
  Receive Date: 20230331
  Receipt Date: 20230613
  Transmission Date: 20230721
  Serious: Yes (Hospitalization, Other)
  Sender: FDA-Public Use
  Company Number: US-BRISTOL-MYERS SQUIBB COMPANY-2023-041949

PATIENT
  Age: 72 Year
  Sex: Female

DRUGS (2)
  1. CAMZYOS [Suspect]
     Active Substance: MAVACAMTEN
     Indication: Hypertrophic cardiomyopathy
     Route: 048
     Dates: start: 20221207, end: 20230530
  2. CAMZYOS [Suspect]
     Active Substance: MAVACAMTEN

REACTIONS (2)
  - Pulmonary oedema [Unknown]
  - Viral infection [Unknown]

NARRATIVE: CASE EVENT DATE: 20230315
